FAERS Safety Report 8236402-5 (Version None)
Quarter: 2012Q1

REPORT INFORMATION
  Report Type: 
  Country: None (occurrence: None)
  Receive Date: 20120327
  Receipt Date: 20120321
  Transmission Date: 20120608
  Serious: No
  Sender: FDA-Public Use
  Company Number: US-PFIZER INC-2012056367

PATIENT
  Sex: Male
  Weight: 94.331 kg

DRUGS (13)
  1. HYDROCHLOROTHIAZIDE [Concomitant]
     Dosage: 25 MG, 1X/DAY
     Route: 048
     Dates: start: 20111012
  2. FLUOXETINE [Concomitant]
     Dosage: UNK
  3. SERTRALINE HYDROCHLORIDE [Concomitant]
     Dosage: 100 MG, EVERY DAY
     Route: 048
     Dates: start: 20111012
  4. PRAVASTATIN SODIUM [Concomitant]
     Dosage: 40 MG, EVERY DAY
     Route: 048
     Dates: start: 20111110
  5. ANDROGEL [Concomitant]
     Dosage: 1.25 G/ACTUATION (1%) APPLY 4 PUMPS (5G) EVERY DAY
     Route: 061
     Dates: start: 20111012
  6. SUTENT [Suspect]
     Dosage: 50 MG, 1X/DAY, X14 DAYS, OFF 7 DAYS, REPEAT
     Route: 048
     Dates: start: 20120202
  7. ACETYLSALICYLIC ACID [Concomitant]
     Dosage: 81 MG, EVERY DAY
     Route: 048
     Dates: start: 20111012
  8. ATENOLOL [Concomitant]
     Dosage: 50 MG, 1X/DAY
     Route: 048
     Dates: start: 20111110
  9. LISINOPRIL [Concomitant]
     Dosage: 40 MG, 1X/DAY
     Route: 048
     Dates: start: 20111012
  10. SYMBYAX [Concomitant]
     Dosage: UNK
  11. SUTENT [Suspect]
     Indication: RENAL CELL CARCINOMA
     Dosage: 50 MG, 1X/DAY, X14 DAYS, OFF 7 DAYS, REPEAT
     Route: 048
     Dates: start: 20111222
  12. AMLODIPINE [Concomitant]
     Dosage: 10 MG, EVERY DAY
     Route: 048
     Dates: start: 20111012
  13. DOXAZOSIN MESILATE [Concomitant]
     Dosage: 2 MG, EVERY DAY
     Route: 048
     Dates: start: 20111012

REACTIONS (6)
  - ABNORMAL BEHAVIOUR [None]
  - PALMAR-PLANTAR ERYTHRODYSAESTHESIA SYNDROME [None]
  - DYSGEUSIA [None]
  - DIARRHOEA [None]
  - ABDOMINAL PAIN UPPER [None]
  - CONSTIPATION [None]
